FAERS Safety Report 9838171 (Version 2)
Quarter: 2014Q1

REPORT INFORMATION
  Report Type: Spontaneous
  Country: US (occurrence: US)
  Receive Date: 20140123
  Receipt Date: 20140312
  Transmission Date: 20141002
  Serious: Yes (Other)
  Sender: FDA-Public Use
  Company Number: US-ABBVIE-14P-163-1191140-00

PATIENT
  Sex: Female
  Weight: 106.69 kg

DRUGS (4)
  1. HUMIRA [Suspect]
     Indication: CROHN^S DISEASE
     Dosage: 4 INJECTIONS
     Route: 058
     Dates: start: 201206, end: 201206
  2. HUMIRA [Suspect]
     Dosage: 2 INJECTIONS
     Route: 058
     Dates: start: 201206, end: 201206
  3. HUMIRA [Suspect]
     Route: 058
     Dates: start: 201207
  4. TYLENOL WITH CODEINE [Concomitant]
     Indication: PAIN
     Route: 048

REACTIONS (3)
  - Endometriosis [Recovering/Resolving]
  - Dysfunctional uterine bleeding [Recovered/Resolved]
  - Impaired healing [Not Recovered/Not Resolved]
